FAERS Safety Report 24646600 (Version 4)
Quarter: 2025Q3

REPORT INFORMATION
  Report Type: Spontaneous
  Country: US (occurrence: US)
  Receive Date: 20241121
  Receipt Date: 20250702
  Transmission Date: 20251021
  Serious: No
  Sender: TEVA
  Company Number: US-TEVA-VS-3263043

PATIENT
  Age: 64 Year
  Sex: Female

DRUGS (3)
  1. AJOVY [Suspect]
     Active Substance: FREMANEZUMAB-VFRM
     Indication: Migraine
     Route: 058
     Dates: start: 20240425
  2. AJOVY [Suspect]
     Active Substance: FREMANEZUMAB-VFRM
     Dosage: INJECT 1.5ML UNDER THE SKIN ONCE MONTHLY
     Route: 058
  3. AJOVY [Suspect]
     Active Substance: FREMANEZUMAB-VFRM
     Dosage: INJECT 1.5ML UNDER THE SKIN MONTHLY
     Route: 058

REACTIONS (5)
  - Migraine [Unknown]
  - Skin mass [Unknown]
  - Product use issue [Unknown]
  - Injection site erythema [Unknown]
  - Sensitivity to weather change [Unknown]

NARRATIVE: CASE EVENT DATE: 20240101
